FAERS Safety Report 20624492 (Version 2)
Quarter: 2022Q1

REPORT INFORMATION
  Report Type: Other
  Country: CA (occurrence: None)
  Receive Date: 20220322
  Receipt Date: 20220330
  Transmission Date: 20220424
  Serious: No
  Sender: FDA-Public Use
  Company Number: CA-ROCHE-3054464

PATIENT
  Sex: Female

DRUGS (1)
  1. OCREVUS [Suspect]
     Active Substance: OCRELIZUMAB
     Indication: Multiple sclerosis relapse
     Dosage: INITIALLY 300 MG DAY 0 AND DAY 14
     Route: 042
     Dates: start: 20210810

REACTIONS (1)
  - Bacterial test positive [Not Recovered/Not Resolved]
